FAERS Safety Report 6775156-6 (Version None)
Quarter: 2010Q2

REPORT INFORMATION
  Report Type: 
  Country: None (occurrence: None)
  Receive Date: 20100617
  Receipt Date: 20100608
  Transmission Date: 20101027
  Serious: Yes (Hospitalization)
  Sender: FDA-Public Use
  Company Number: JP-SANOFI-AVENTIS-2010SA032798

PATIENT
  Age: 81 Year
  Sex: Male

DRUGS (13)
  1. OXALIPLATIN [Suspect]
     Indication: COLON CANCER METASTATIC
     Route: 041
     Dates: start: 20100210, end: 20100210
  2. OXALIPLATIN [Suspect]
     Route: 041
     Dates: start: 20100303, end: 20100303
  3. AVASTIN [Suspect]
     Indication: COLON CANCER METASTATIC
     Route: 041
     Dates: start: 20090609, end: 20090609
  4. AVASTIN [Suspect]
     Route: 041
     Dates: start: 20100106, end: 20100106
  5. XELODA [Suspect]
     Indication: COLON CANCER METASTATIC
     Route: 048
     Dates: start: 20100210, end: 20100317
  6. UFT [Concomitant]
     Dates: start: 20090609, end: 20100127
  7. LEUCOVORIN CALCIUM [Concomitant]
     Dates: start: 20090609, end: 20100127
  8. DEXAMETHASONE SODIUM PHOSPHATE [Concomitant]
     Dates: start: 20100210, end: 20100303
  9. HERBAL PREPARATION [Concomitant]
     Dates: start: 20100212, end: 20100303
  10. SENNOSIDE A+B [Concomitant]
     Dates: start: 20100212, end: 20100303
  11. LAXOBERON [Concomitant]
     Dates: start: 20100212, end: 20100303
  12. ATARAX [Concomitant]
     Dates: start: 20100212, end: 20100212
  13. GABALON [Concomitant]
     Dates: start: 20100213, end: 20100330

REACTIONS (3)
  - CONSTIPATION [None]
  - HICCUPS [None]
  - LIVER ABSCESS [None]
